FAERS Safety Report 12267916 (Version 2)
Quarter: 2016Q2

REPORT INFORMATION
  Report Type: Report from Study
  Country: NL (occurrence: NL)
  Receive Date: 20160414
  Receipt Date: 20160510
  Transmission Date: 20160815
  Serious: Yes (Hospitalization, Other)
  Sender: FDA-Public Use
  Company Number: PHHY2016NL048711

PATIENT
  Age: 53 Year
  Sex: Male

DRUGS (2)
  1. SUNITINIB [Concomitant]
     Active Substance: SUNITINIB
     Indication: PRODUCT USED FOR UNKNOWN INDICATION
     Dosage: 37.5 MG, UNK
     Route: 065
  2. SANDOSTATINE LAR [Suspect]
     Active Substance: OCTREOTIDE ACETATE
     Indication: NEUROENDOCRINE TUMOUR
     Dosage: 30 MG/2ML, ONCE EVERY 4 WEEKS
     Route: 030

REACTIONS (7)
  - Brain neoplasm [Recovered/Resolved with Sequelae]
  - Malignant neoplasm progression [Unknown]
  - Weight decreased [Unknown]
  - Fatigue [Unknown]
  - Intracranial pressure increased [Unknown]
  - Decreased appetite [Unknown]
  - Metastases to liver [Unknown]

NARRATIVE: CASE EVENT DATE: 20160323
